FAERS Safety Report 7638012-7 (Version None)
Quarter: 2011Q3

REPORT INFORMATION
  Report Type: 
  Country: None (occurrence: None)
  Receive Date: 20110720
  Receipt Date: 20110711
  Transmission Date: 20111222
  Serious: Yes (Disabling)
  Sender: FDA-Public Use
  Company Number: OSCN-NO-0903S-0173

PATIENT
  Age: 56 Year
  Sex: Female

DRUGS (5)
  1. EPOITIN BETA (NEORECORMON) (EPOETIN BETA) [Concomitant]
  2. OMNISCAN [Suspect]
     Indication: PRODUCT USED FOR UNKNOWN INDICATION
     Dosage: 40 ML, SINGLE DOSE, INTRAVENOUS
     Route: 042
     Dates: start: 20051208, end: 20051208
  3. AZATHIOPRINE (IMUREL) (AZATHIOPRINE) [Concomitant]
  4. CICLOSPORIN (SANDIMMUN) (CICLOSPORIN) [Concomitant]
  5. GADOPENTATE DIMEGLUMINE (MAGNEVIST) (GADOPENTETATE DIMEGLUMINE) [Suspect]
     Indication: PRODUCT USED FOR UNKNOWN INDICATION
     Dosage: 10 ML, SINGLE DOSE, INTRA-ARTICULAR
     Route: 014
     Dates: start: 20050511, end: 20050511

REACTIONS (1)
  - NEPHROGENIC SYSTEMIC FIBROSIS [None]
